FAERS Safety Report 10973710 (Version 1)
Quarter: 2015Q1

REPORT INFORMATION
  Report Type: Spontaneous
  Country: US (occurrence: None)
  Receive Date: 20150226
  Receipt Date: 20150226
  Transmission Date: 20150721
  Serious: No
  Sender: FDA-Public Use
  Company Number: TPA2009A02820

PATIENT
  Age: 78 Year
  Sex: Female

DRUGS (4)
  1. COLCHICINE. [Concomitant]
     Active Substance: COLCHICINE
  2. ULORIC [Suspect]
     Active Substance: FEBUXOSTAT
     Indication: GOUT
     Route: 048
     Dates: start: 200905, end: 200905
  3. VERAPAMIL [Suspect]
     Active Substance: VERAPAMIL HYDROCHLORIDE
  4. PROBENECID. [Concomitant]
     Active Substance: PROBENECID

REACTIONS (3)
  - Miliaria [None]
  - Hair texture abnormal [None]
  - Alopecia [None]

NARRATIVE: CASE EVENT DATE: 200905
